FAERS Safety Report 19583942 (Version 1)
Quarter: 2021Q3

REPORT INFORMATION
  Report Type: Spontaneous
  Country: CA (occurrence: CA)
  Receive Date: 20210720
  Receipt Date: 20210720
  Transmission Date: 20211014
  Serious: Yes (Life-Threatening)
  Sender: FDA-Public Use
  Company Number: CA-PFIZER INC-2021840036

PATIENT
  Age: 2 Day
  Sex: Female
  Weight: 4 kg

DRUGS (10)
  1. DEXTROSE. [Concomitant]
     Active Substance: DEXTROSE
  2. EPINEPHRINE. [Concomitant]
     Active Substance: EPINEPHRINE
  3. MORPHINE [Concomitant]
     Active Substance: MORPHINE
  4. FENTANYL. [Concomitant]
     Active Substance: FENTANYL
  5. SODIUM BICARBONATE. [Concomitant]
     Active Substance: SODIUM BICARBONATE
  6. AMPICILLIN [Concomitant]
     Active Substance: AMPICILLIN
  7. TOBRAMYCIN. [Concomitant]
     Active Substance: TOBRAMYCIN
  8. LORAZEPAM. [Concomitant]
     Active Substance: LORAZEPAM
  9. PROSTIN [Suspect]
     Active Substance: ALPROSTADIL
     Indication: COARCTATION OF THE AORTA
     Dosage: 0.7 UG, 1 EVERY 1 MINUTES
     Route: 041
  10. HEPARIN CALCIUM [Concomitant]
     Active Substance: HEPARIN CALCIUM

REACTIONS (2)
  - Drug ineffective [Unknown]
  - Patent ductus arteriosus [Unknown]
